FAERS Safety Report 6968318-6 (Version None)
Quarter: 2010Q3

REPORT INFORMATION
  Report Type: 
  Country: None (occurrence: None)
  Receive Date: 20100907
  Receipt Date: 20100831
  Transmission Date: 20110219
  Serious: Yes (Hospitalization)
  Sender: FDA-Public Use
  Company Number: US-ROCHE-720706

PATIENT
  Sex: Male
  Weight: 85.4 kg

DRUGS (13)
  1. BEVACIZUMAB [Suspect]
     Indication: NON-SMALL CELL LUNG CANCER STAGE IV
     Dosage: LAST DOSE: 30 JUNE 2010, STUDY THERAPY WAS HELD
     Route: 042
     Dates: start: 20091104
  2. PEMETREXED [Suspect]
     Indication: NON-SMALL CELL LUNG CANCER STAGE IV
     Dosage: LAST DOSE: 30 JUNE 2010, STUDY THERAPY WAS HELD
     Route: 042
     Dates: start: 20091104
  3. CARBOPLATIN [Suspect]
     Indication: NON-SMALL CELL LUNG CANCER STAGE IV
     Dosage: LAST DOSE: 06 JAN 2010, STUDY THERAPY WAS HELD
     Route: 042
     Dates: start: 20091104
  4. ATROVENT [Concomitant]
  5. SPIRIVA [Concomitant]
  6. TOPROL-XL [Concomitant]
  7. FOLIC ACID [Concomitant]
     Dates: start: 20091027
  8. GLUCOTROL [Concomitant]
  9. LANTUS [Concomitant]
  10. FUROSEMIDE [Concomitant]
  11. CETIRIZINE HYDROCHLORIDE [Concomitant]
     Dosage: DRUG NAME: ZESTRA (CETIRIZINE HYDROCHLORIDE, PSEUDOEPHEDRINE HYDROCHLORIDE)
  12. PRILOSEC [Concomitant]
  13. ZOCOR [Concomitant]

REACTIONS (1)
  - PNEUMONIA [None]
